FAERS Safety Report 11441152 (Version 1)
Quarter: 2015Q3

REPORT INFORMATION
  Report Type: Spontaneous
  Country: US (occurrence: US)
  Receive Date: 20150821
  Receipt Date: 20150821
  Transmission Date: 20151125
  Serious: No
  Sender: FDA-Public Use
  Company Number: US-ELI_LILLY_AND_COMPANY-US200802001302

PATIENT
  Age: 36 Year

DRUGS (3)
  1. ULTRAM [Concomitant]
     Active Substance: TRAMADOL HYDROCHLORIDE
  2. CAPOTEN [Concomitant]
     Active Substance: CAPTOPRIL
  3. CYMBALTA [Suspect]
     Active Substance: DULOXETINE HYDROCHLORIDE
     Dosage: 30 MG, UNK
     Dates: start: 200710, end: 200801

REACTIONS (2)
  - Tachycardia [Unknown]
  - Blood pressure increased [Unknown]
